FAERS Safety Report 14968328 (Version 1)
Quarter: 2018Q2

REPORT INFORMATION
  Report Type: Report from Study
  Country: US (occurrence: US)
  Receive Date: 20180604
  Receipt Date: 20180604
  Transmission Date: 20180711
  Serious: Yes (Hospitalization, Other)
  Sender: FDA-Public Use
  Company Number: US-BAYER-2018-081262

PATIENT
  Age: 71 Year
  Sex: Female
  Weight: 67.12 kg

DRUGS (2)
  1. ADEMPAS [Suspect]
     Active Substance: RIOCIGUAT
     Indication: PULMONARY ARTERIAL HYPERTENSION
     Dosage: 1 MG, TID
     Route: 048
  2. ADEMPAS [Suspect]
     Active Substance: RIOCIGUAT
     Indication: PULMONARY ARTERIAL HYPERTENSION
     Dosage: UNK
     Route: 048
     Dates: start: 20170829

REACTIONS (4)
  - Chronic obstructive pulmonary disease [Unknown]
  - Cardiac pacemaker insertion [Unknown]
  - Product availability issue [None]
  - Hospitalisation [None]

NARRATIVE: CASE EVENT DATE: 201805
